FAERS Safety Report 15398569 (Version 1)
Quarter: 2018Q3

REPORT INFORMATION
  Report Type: Spontaneous
  Country: CA (occurrence: CA)
  Receive Date: 20180918
  Receipt Date: 20180918
  Transmission Date: 20181010
  Serious: Yes (Other)
  Sender: FDA-Public Use
  Company Number: CA-PFIZER INC-2018374281

PATIENT
  Age: 32 Year
  Sex: Female

DRUGS (9)
  1. APO?LORAZEPAM [Suspect]
     Active Substance: LORAZEPAM
     Dosage: UNK
     Route: 042
  2. APO?VALPROIC [Suspect]
     Active Substance: VALPROIC ACID
     Dosage: 500 MG, 1 EVERY 6 HOURS
     Route: 065
  3. PARALDEHYDE [Suspect]
     Active Substance: PARALDEHYDE
     Dosage: 500 ML, UNK
     Route: 065
  4. PHENOBARBITAL. [Suspect]
     Active Substance: PHENOBARBITAL
     Dosage: 40 MG, 1 EVERY 1 HOUR
     Route: 065
  5. APO DIAZEPAM [Suspect]
     Active Substance: DIAZEPAM
     Dosage: 100 MG, 1 EVERY 1 HOUR
     Route: 042
  6. PHENOBARBITAL. [Suspect]
     Active Substance: PHENOBARBITAL
     Dosage: 160 MG, 1 EVERY 4 HOURS
     Route: 065
  7. FORANE [Suspect]
     Active Substance: ISOFLURANE
     Dosage: UNK
     Route: 065
  8. LIDOCAINE. [Suspect]
     Active Substance: LIDOCAINE
     Dosage: 4 MG, UNK
     Route: 061
  9. PHENYTOIN. [Suspect]
     Active Substance: PHENYTOIN
     Dosage: 500 MG, DAILY
     Route: 065

REACTIONS (3)
  - Drug ineffective [Unknown]
  - Status epilepticus [Unknown]
  - Hypotension [Unknown]
